FAERS Safety Report 22800408 (Version 2)
Quarter: 2024Q1

REPORT INFORMATION
  Report Type: Spontaneous
  Country: US (occurrence: US)
  Receive Date: 20230808
  Receipt Date: 20240221
  Transmission Date: 20240410
  Serious: Yes (Other)
  Sender: FDA-Public Use
  Company Number: US-JNJFOC-20230764948

PATIENT

DRUGS (4)
  1. IMBRUVICA [Suspect]
     Active Substance: IBRUTINIB
     Indication: Central nervous system lymphoma
     Route: 048
  2. IMBRUVICA [Suspect]
     Active Substance: IBRUTINIB
     Indication: Central nervous system lymphoma
     Route: 048
  3. METHOTREXATE [Suspect]
     Active Substance: METHOTREXATE
     Indication: Product used for unknown indication
     Dosage: TOTAL OF 8 DOSES (4 CYCLES; 1 CYCLE 5 28 DAYS)
     Route: 065
  4. RITUXIMAB [Suspect]
     Active Substance: RITUXIMAB
     Indication: Product used for unknown indication
     Route: 065

REACTIONS (32)
  - Acute kidney injury [Unknown]
  - Hyponatraemia [Unknown]
  - Diarrhoea [Unknown]
  - Drug interaction [Unknown]
  - Hypoalbuminaemia [Unknown]
  - Aspartate aminotransferase increased [Unknown]
  - Atrial fibrillation [Unknown]
  - Pneumonia [Unknown]
  - Activated partial thromboplastin time prolonged [Unknown]
  - Hyperglycaemia [Unknown]
  - Muscle spasms [Unknown]
  - Alanine aminotransferase increased [Unknown]
  - White blood cell count decreased [Unknown]
  - Hyperkalaemia [Unknown]
  - Lymphocyte count decreased [Unknown]
  - Blood creatinine increased [Unknown]
  - Neutrophil count decreased [Unknown]
  - Skin infection [Unknown]
  - Anaemia [Unknown]
  - Arthralgia [Unknown]
  - Hypocalcaemia [Unknown]
  - Fatigue [Unknown]
  - Hypokalaemia [Unknown]
  - Infection [Unknown]
  - Off label use [Unknown]
  - Blood cholesterol increased [Unknown]
  - Nausea [Unknown]
  - Blood alkaline phosphatase increased [Unknown]
  - Platelet count decreased [Unknown]
  - Hypertriglyceridaemia [Unknown]
  - Headache [Unknown]
  - Blood bilirubin increased [Unknown]
